FAERS Safety Report 6027965-9 (Version None)
Quarter: 2008Q4

REPORT INFORMATION
  Report Type: 
  Country: None (occurrence: None)
  Receive Date: 20081230
  Receipt Date: 20081215
  Transmission Date: 20090506
  Serious: Yes (Hospitalization)
  Sender: FDA-Public Use
  Company Number: 100#03#2008-06280

PATIENT
  Age: 72 Year
  Sex: Female

DRUGS (5)
  1. DICLOFENAC (DICLOFENAC) [Suspect]
     Indication: MUSCULOSKELETAL DISCOMFORT
     Dosage: 150 MG
     Route: 048
     Dates: start: 20081128
  2. METFORMIN HCL [Suspect]
     Indication: DIABETES MELLITUS
     Dosage: 2000 MG
     Route: 048
     Dates: end: 20081206
  3. GLIBENCLAMIDE (GLIBENCLAIMIDE) [Concomitant]
  4. NEXIUM 40 (ESOMPRAZOLE) [Concomitant]
  5. RAMIPRIL 5 (RAMIPRIL) [Concomitant]

REACTIONS (2)
  - COMA [None]
  - LACTIC ACIDOSIS [None]
